FAERS Safety Report 21928391 (Version 3)
Quarter: 2023Q1

REPORT INFORMATION
  Report Type: Report from Study
  Country: CA (occurrence: CA)
  Receive Date: 20230130
  Receipt Date: 20230331
  Transmission Date: 20230417
  Serious: Yes (Hospitalization, Other)
  Sender: FDA-Public Use
  Company Number: CA-ABBVIE-4287992

PATIENT
  Age: 80 Year
  Sex: Female

DRUGS (1)
  1. SKYRIZI [Suspect]
     Active Substance: RISANKIZUMAB-RZAA
     Indication: Psoriasis
     Dosage: FORM STRENGTH: 150 MG
     Route: 058
     Dates: start: 20221018

REACTIONS (6)
  - Cardiac disorder [Unknown]
  - Therapeutic product effect incomplete [Unknown]
  - Drainage [Unknown]
  - Unevaluable event [Unknown]
  - Feeling abnormal [Unknown]
  - Localised infection [Unknown]

NARRATIVE: CASE EVENT DATE: 20221001
